FAERS Safety Report 15809524 (Version 3)
Quarter: 2019Q3

REPORT INFORMATION
  Report Type: Spontaneous
  Country: CN (occurrence: CN)
  Receive Date: 20190111
  Receipt Date: 20190929
  Transmission Date: 20191004
  Serious: Yes (Hospitalization)
  Sender: FDA-Public Use
  Company Number: CN-AMGEN-CHNSP2019002222

PATIENT
  Age: 29 Year
  Sex: Female

DRUGS (18)
  1. NIFEDIPINE. [Suspect]
     Active Substance: NIFEDIPINE
     Indication: HYPERTENSION
     Dosage: 30 MILLIGRAM, QD
     Route: 048
     Dates: start: 2013, end: 2018
  2. MECOBALAMIN [Suspect]
     Active Substance: METHYLCOBALAMIN
     Indication: INSOMNIA
  3. CALCITRIOL. [Concomitant]
     Active Substance: CALCITRIOL
  4. REGPARA [Suspect]
     Active Substance: CINACALCET HYDROCHLORIDE
     Indication: HYPERPARATHYROIDISM SECONDARY
     Dosage: 50 MILLIGRAM, QD
     Route: 048
     Dates: start: 20180326, end: 201803
  5. BISOPROLOL FUMARATE. [Concomitant]
     Active Substance: BISOPROLOL FUMARATE
     Indication: HEART RATE INCREASED
     Dosage: 1/2 TABLET, AS NECESSARY (AS NEEDED)
     Route: 048
  6. REGPARA [Suspect]
     Active Substance: CINACALCET HYDROCHLORIDE
     Dosage: 50 MILLIGRAM, QD
     Route: 048
     Dates: start: 20190101
  7. TERAZOSIN HYDROCHLORIDE. [Suspect]
     Active Substance: TERAZOSIN HYDROCHLORIDE
     Indication: HYPERTENSION
     Dosage: 1 MILLIGRAM, QD
     Route: 048
     Dates: start: 2013, end: 2018
  8. MECOBALAMIN [Suspect]
     Active Substance: METHYLCOBALAMIN
     Indication: PALPITATIONS
     Dosage: 0.5 MILLIGRAM, TID
     Route: 048
     Dates: start: 2018, end: 2018
  9. CALCITRIOL. [Concomitant]
     Active Substance: CALCITRIOL
     Indication: HYPERPARATHYROIDISM SECONDARY
     Dosage: 1 DF (TABLET), QD
     Route: 048
  10. CLONIDINE. [Concomitant]
     Active Substance: CLONIDINE
     Indication: BLOOD PRESSURE INCREASED
     Dosage: UNK
     Route: 048
  11. CALCITRIOL. [Concomitant]
     Active Substance: CALCITRIOL
     Indication: MINERAL SUPPLEMENTATION
     Dosage: 1 TABLET, QD
     Route: 048
  12. IRBESARTAN. [Concomitant]
     Active Substance: IRBESARTAN
     Indication: BLOOD PRESSURE INCREASED
  13. BISOPROLOL FUMARATE. [Concomitant]
     Active Substance: BISOPROLOL FUMARATE
     Dosage: 1/2 TABLET, AS NEEDED
     Route: 048
  14. CLONIDINE. [Concomitant]
     Active Substance: CLONIDINE
     Indication: BLOOD PRESSURE INCREASED
     Dosage: UNK
     Route: 048
  15. IRBESARTAN. [Concomitant]
     Active Substance: IRBESARTAN
     Indication: BLOOD PRESSURE INCREASED
     Dosage: UNK
     Route: 048
  16. BISOPROLOL FUMARATE. [Concomitant]
     Active Substance: BISOPROLOL FUMARATE
     Dosage: 1/2 TABLET, AS NEEDED
  17. CALCITRIOL. [Concomitant]
     Active Substance: CALCITRIOL
     Indication: MINERAL SUPPLEMENTATION
     Dosage: 1 TABLET, QD
  18. REGPARA [Suspect]
     Active Substance: CINACALCET HYDROCHLORIDE
     Dosage: 25 MILLIGRAM, QD
     Route: 048
     Dates: start: 201804, end: 201901

REACTIONS (2)
  - Blood pressure increased [Recovered/Resolved]
  - Starvation [Recovering/Resolving]

NARRATIVE: CASE EVENT DATE: 20180326
